FAERS Safety Report 8217570-8 (Version None)
Quarter: 2012Q1

REPORT INFORMATION
  Report Type: 
  Country: None (occurrence: None)
  Receive Date: 20120319
  Receipt Date: 20120319
  Transmission Date: 20120608
  Serious: Yes (Other)
  Sender: FDA-Public Use
  Company Number: None

PATIENT
  Sex: Male
  Weight: 88.45 kg

DRUGS (1)
  1. CIPROFLOXACIN [Suspect]
     Indication: URINARY TRACT INFECTION
     Dosage: 2 PILLS
     Route: 048
     Dates: start: 20120313, end: 20120315

REACTIONS (4)
  - ARTHRALGIA [None]
  - DRUG HYPERSENSITIVITY [None]
  - TENDON DISORDER [None]
  - PAIN IN EXTREMITY [None]
